FAERS Safety Report 5878078-8 (Version None)
Quarter: 2008Q3

REPORT INFORMATION
  Report Type: 
  Country: None (occurrence: None)
  Receive Date: 20080911
  Receipt Date: 20080905
  Transmission Date: 20090109
  Serious: Yes (Hospitalization)
  Sender: FDA-Public Use
  Company Number: US-MERCK-0807USA05689

PATIENT
  Age: 86 Year
  Sex: Female

DRUGS (4)
  1. FOSAMAX [Suspect]
     Indication: OSTEOPOROSIS
     Route: 048
     Dates: start: 20000101
  2. CARTIA XT [Concomitant]
     Route: 065
  3. LEVOXYL [Concomitant]
     Route: 065
  4. RODEX (WARFARIN) [Concomitant]
     Route: 065

REACTIONS (4)
  - FALL [None]
  - HIP FRACTURE [None]
  - MUSCULAR WEAKNESS [None]
  - UPPER LIMB FRACTURE [None]
